FAERS Safety Report 4832875-6 (Version None)
Quarter: 2005Q4

REPORT INFORMATION
  Report Type: 
  Country: None (occurrence: None)
  Receive Date: 20051121
  Receipt Date: 20010808
  Transmission Date: 20060501
  Serious: Yes (Other)
  Sender: FDA-Public Use
  Company Number: FR-GLAXOSMITHKLINE-B0252797A

PATIENT
  Age: 35 Year
  Sex: Male
  Weight: 75 kg

DRUGS (1)
  1. AMOXICILLINE RPG [Suspect]
     Dosage: 2000MG PER DAY
     Route: 048

REACTIONS (1)
  - ACUTE PULMONARY OEDEMA [None]
